FAERS Safety Report 15582588 (Version 3)
Quarter: 2020Q1

REPORT INFORMATION
  Report Type: Report from Study
  Country: None (occurrence: NL)
  Receive Date: 20181103
  Receipt Date: 20200304
  Transmission Date: 20200409
  Serious: Yes (Other)
  Sender: FDA-Public Use
  Company Number: NL-ABBVIE-18S-114-2467220-00

PATIENT
  Sex: Female
  Weight: 43 kg

DRUGS (5)
  1. DUODOPA [Suspect]
     Active Substance: CARBIDOPA\LEVODOPA
     Indication: PARKINSON^S DISEASE
     Route: 050
     Dates: start: 20120330
  2. DUODOPA [Suspect]
     Active Substance: CARBIDOPA\LEVODOPA
     Dosage: MD: 7.0, CD: 3.7, ED: 2.5 16 HOUR ADMINISTRATION
     Route: 050
  3. SINEMET [Concomitant]
     Active Substance: CARBIDOPA\LEVODOPA
     Indication: PRODUCT USED FOR UNKNOWN INDICATION
  4. SYMMETREL [Concomitant]
     Active Substance: AMANTADINE HYDROCHLORIDE
     Indication: DYSKINESIA
     Route: 048
     Dates: start: 20161207
  5. DUODOPA [Suspect]
     Active Substance: CARBIDOPA\LEVODOPA
     Dosage: MD 7.0 CD 3.8 ED 2.5
     Route: 050
     Dates: start: 20120330

REACTIONS (9)
  - Fall [Unknown]
  - Fall [Recovered/Resolved]
  - Dyskinesia [Not Recovered/Not Resolved]
  - Bursitis [Not Recovered/Not Resolved]
  - Hip fracture [Recovered/Resolved]
  - Fibroma [Recovered/Resolved]
  - Joint injury [Not Recovered/Not Resolved]
  - Arthralgia [Not Recovered/Not Resolved]
  - Stoma site inflammation [Recovered/Resolved]

NARRATIVE: CASE EVENT DATE: 2018
